FAERS Safety Report 24782582 (Version 3)
Quarter: 2025Q1

REPORT INFORMATION
  Report Type: Spontaneous
  Country: GB (occurrence: GB)
  Receive Date: 20241227
  Receipt Date: 20250221
  Transmission Date: 20250409
  Serious: No
  Sender: PFIZER
  Company Number: GB-PFIZER INC-PV202400166242

PATIENT
  Age: 12 Year
  Sex: Male

DRUGS (1)
  1. GENOTROPIN [Suspect]
     Active Substance: SOMATROPIN
     Dosage: 12 MG, DAILY

REACTIONS (2)
  - Drug dose omission by device [Unknown]
  - Device defective [Unknown]
